FAERS Safety Report 13693783 (Version 1)
Quarter: 2017Q2

REPORT INFORMATION
  Report Type: Spontaneous
  Country: SE (occurrence: SE)
  Receive Date: 20170627
  Receipt Date: 20170627
  Transmission Date: 20170830
  Serious: Yes (Life-Threatening, Hospitalization)
  Sender: FDA-Public Use
  Company Number: SE-GUERBET-SE-20170008

PATIENT
  Age: 62 Year
  Sex: Female

DRUGS (1)
  1. DOTAREM [Suspect]
     Active Substance: GADOTERATE MEGLUMINE
     Indication: X-RAY WITH CONTRAST LOWER GASTROINTESTINAL TRACT
     Route: 065
     Dates: start: 20170531, end: 20170531

REACTIONS (3)
  - Dyspnoea [Unknown]
  - Throat irritation [Unknown]
  - Dry throat [Unknown]

NARRATIVE: CASE EVENT DATE: 20170531
